FAERS Safety Report 9201468 (Version 1)
Quarter: 2013Q2

REPORT INFORMATION
  Report Type: Spontaneous
  Country: DE (occurrence: US)
  Receive Date: 20130401
  Receipt Date: 20130401
  Transmission Date: 20140414
  Serious: No
  Sender: FDA-Public Use
  Company Number: DE-PFIZER INC-2013099986

PATIENT
  Age: 68 Year
  Sex: Female

DRUGS (1)
  1. XANAX [Suspect]
     Indication: ANXIETY
     Dosage: 0.5 MG, 3X/DAY

REACTIONS (5)
  - Fatigue [Unknown]
  - Visual impairment [Unknown]
  - Disturbance in attention [Unknown]
  - Aggression [Unknown]
  - Anxiety [Unknown]
